FAERS Safety Report 5638220-0 (Version None)
Quarter: 2008Q1

REPORT INFORMATION
  Report Type: 
  Country: None (occurrence: None)
  Receive Date: 20080226
  Receipt Date: 20080215
  Transmission Date: 20080703
  Serious: Yes (Other)
  Sender: FDA-Public Use
  Company Number: ES-JNJFOC-20080103192

PATIENT
  Age: 63 Year
  Sex: Female

DRUGS (10)
  1. REMICADE [Suspect]
     Dosage: BETWEEN 11-FEB-2008 AND 15-FEB-2008
     Route: 042
  2. REMICADE [Suspect]
     Route: 042
  3. REMICADE [Suspect]
     Dosage: LAST DOSE PRIOR TO INFUSION REACTION, OVER 45 MINUTES
     Route: 042
  4. REMICADE [Suspect]
     Route: 042
  5. REMICADE [Suspect]
     Indication: RHEUMATOID ARTHRITIS
     Dosage: INITIAL INFUSION
     Route: 042
  6. PREDNISONE TAB [Concomitant]
     Route: 065
  7. INACID [Concomitant]
     Route: 065
  8. ARAVA [Concomitant]
     Route: 065
  9. LYRICA [Concomitant]
     Route: 065
  10. ZYTRAM [Concomitant]
     Route: 065

REACTIONS (5)
  - ABDOMINAL PAIN UPPER [None]
  - COLD SWEAT [None]
  - INFUSION RELATED REACTION [None]
  - ISCHAEMIA [None]
  - NAUSEA [None]
